FAERS Safety Report 5236982-8 (Version None)
Quarter: 2007Q1

REPORT INFORMATION
  Report Type: 
  Country: None (occurrence: None)
  Receive Date: 20070213
  Receipt Date: 20070206
  Transmission Date: 20070707
  Serious: Yes (Life-Threatening)
  Sender: FDA-Public Use
  Company Number: JP-ROCHE-459314

PATIENT
  Age: 77 Year
  Sex: Male

DRUGS (2)
  1. TICLOPIDINE HCL [Suspect]
     Indication: THROMBOSIS PROPHYLAXIS
     Dosage: INDICATIONS REPORTED AS THROMBOSIS PROPHYLAXIS, STENT PLACEMENT AND ANGINA PECTORIS.
     Route: 048
     Dates: start: 20060620, end: 20060801
  2. ASPIRIN [Concomitant]
     Route: 048
     Dates: end: 20060801

REACTIONS (2)
  - CYTOLYTIC HEPATITIS [None]
  - LIVER DISORDER [None]
